FAERS Safety Report 18414736 (Version 1)
Quarter: 2020Q4

REPORT INFORMATION
  Report Type: Spontaneous
  Country: IN (occurrence: IN)
  Receive Date: 20201022
  Receipt Date: 20201022
  Transmission Date: 20210114
  Serious: Yes (Other)
  Sender: FDA-Public Use
  Company Number: IN-MYLANLABS-2020M1088839

PATIENT
  Age: 4 Decade
  Sex: Male

DRUGS (5)
  1. RITUXIMAB. [Suspect]
     Active Substance: RITUXIMAB
     Indication: MYASTHENIA GRAVIS
     Dosage: 300 MILLIGRAM/SQ. METER 1 CYCLE (FOUR DOSES OF RITUXIMAB)
     Route: 065
     Dates: start: 201606
  2. TENOFOVIR DISOPROXIL [Suspect]
     Active Substance: TENOFOVIR DISOPROXIL
     Indication: HEPATITIS B
     Dosage: UNK
     Route: 065
  3. IMMUNE GLOBULIN [Concomitant]
     Dosage: UNK
     Route: 042
  4. IMMUNE GLOBULIN [Concomitant]
     Indication: MYASTHENIA GRAVIS
     Dosage: 2 G/KG WAS INFUSED OVER 5 DAYS
     Route: 042
     Dates: start: 2016
  5. AZATHIOPRINE. [Concomitant]
     Active Substance: AZATHIOPRINE
     Indication: MYASTHENIA GRAVIS
     Dosage: TITRATED UP TO 150 MG IN DIVIDED DOSES
     Route: 065

REACTIONS (1)
  - Leukopenia [Unknown]

NARRATIVE: CASE EVENT DATE: 2016
